FAERS Safety Report 8083879-4 (Version None)
Quarter: 2012Q1

REPORT INFORMATION
  Report Type: 
  Country: None (occurrence: None)
  Receive Date: 20120128
  Receipt Date: 20110117
  Transmission Date: 20120608
  Serious: No
  Sender: FDA-Public Use
  Company Number: US-ABBOTT-11P-163-0698968-00

PATIENT
  Sex: Male
  Weight: 102.15 kg

DRUGS (4)
  1. CRESTOR [Concomitant]
     Indication: BLOOD CHOLESTEROL INCREASED
  2. HUMIRA [Suspect]
     Indication: PSORIATIC ARTHROPATHY
     Dates: start: 20090101
  3. RAMIPRIL [Concomitant]
     Indication: HYPERTENSION
  4. FLUTICASONE PROPIONATE [Concomitant]
     Indication: SINUS CONGESTION

REACTIONS (4)
  - FATIGUE [None]
  - SINUSITIS [None]
  - SINUS CONGESTION [None]
  - SPUTUM INCREASED [None]
